FAERS Safety Report 10835047 (Version 1)
Quarter: 2015Q1

REPORT INFORMATION
  Report Type: Report from Study
  Country: US (occurrence: US)
  Receive Date: 20150219
  Receipt Date: 20150219
  Transmission Date: 20150721
  Serious: No
  Sender: FDA-Public Use
  Company Number: US-ABBVIE-14P-163-1206633-00

PATIENT
  Age: 63 Year
  Sex: Male

DRUGS (3)
  1. CEPHALEXIN. [Suspect]
     Active Substance: CEPHALEXIN
     Indication: SWELLING FACE
  2. CEPHALEXIN. [Suspect]
     Active Substance: CEPHALEXIN
     Indication: TOOTHACHE
     Dates: start: 20140221, end: 20140224
  3. HUMIRA [Suspect]
     Active Substance: ADALIMUMAB
     Indication: PSORIASIS

REACTIONS (8)
  - Swelling face [Not Recovered/Not Resolved]
  - Toothache [Not Recovered/Not Resolved]
  - Drug ineffective [Unknown]
  - Psoriatic arthropathy [Unknown]
  - Anxiety [Unknown]
  - Chronic obstructive pulmonary disease [Unknown]
  - Drug dose omission [Unknown]
  - Hypertension [Unknown]

NARRATIVE: CASE EVENT DATE: 201402
